FAERS Safety Report 4289870-8 (Version None)
Quarter: 2004Q1

REPORT INFORMATION
  Report Type: 
  Country: None (occurrence: None)
  Receive Date: 20040206
  Receipt Date: 20040127
  Transmission Date: 20041129
  Serious: Yes (Life-Threatening)
  Sender: FDA-Public Use
  Company Number: 200410052BFR

PATIENT
  Age: 57 Year
  Sex: Female

DRUGS (1)
  1. ADALAT [Suspect]
     Indication: HYPERTENSION
     Dosage: 20 MG, TOTAL DAILY, ORAL
     Route: 048
     Dates: start: 20001219

REACTIONS (1)
  - ANGIONEUROTIC OEDEMA [None]
